FAERS Safety Report 8147932 (Version 4)
Quarter: 2014Q1

REPORT INFORMATION
  Report Type: Report from Study
  Country: JP (occurrence: JP)
  Receive Date: 20110922
  Receipt Date: 20140123
  Transmission Date: 20141002
  Serious: Yes (Hospitalization)
  Sender: FDA-Public Use
  Company Number: JP-SHIRE-ALL1-2011-03487

PATIENT
  Age: 39 Year
  Sex: Male
  Weight: 60 kg

DRUGS (6)
  1. AGALSIDASE ALFA [Suspect]
     Indication: FABRY^S DISEASE
     Dosage: 10.5 MG, 1X/2WKS
     Route: 041
     Dates: start: 20100909
  2. GRACEPTOR [Suspect]
     Indication: PROPHYLAXIS AGAINST TRANSPLANT REJECTION
     Dosage: 3.5 MG, 1X/DAY:QD
     Route: 048
     Dates: start: 20100525
  3. TEGRETOL [Concomitant]
     Indication: ANALGESIC THERAPY
     Dosage: 200 MG, 1X/DAY:QD
     Route: 048
     Dates: start: 20040531
  4. CELLCEPT                           /01275102/ [Concomitant]
     Indication: PROPHYLAXIS AGAINST TRANSPLANT REJECTION
     Dosage: 1000 MG, 1X/DAY:QD
     Route: 048
     Dates: start: 20041010
  5. MICARDIS [Concomitant]
     Indication: NEPHROPATHY
     Dosage: 20 MG, 1X/DAY:QD
     Route: 048
     Dates: start: 20060720
  6. FOSAMAC [Concomitant]
     Indication: PRODUCT USED FOR UNKNOWN INDICATION
     Dosage: 5 MG, UNKNOWN
     Route: 048
     Dates: start: 20110210

REACTIONS (1)
  - Herpes zoster [Recovered/Resolved]
